FAERS Safety Report 22047887 (Version 1)
Quarter: 2023Q1

REPORT INFORMATION
  Report Type: Spontaneous
  Country: GB (occurrence: GB)
  Receive Date: 20230301
  Receipt Date: 20230301
  Transmission Date: 20230418
  Serious: Yes (Other)
  Sender: FDA-Public Use
  Company Number: GB-PFIZER INC-202300074479

PATIENT
  Age: 56 Year
  Sex: Female

DRUGS (4)
  1. PAXLOVID [Suspect]
     Active Substance: NIRMATRELVIR\RITONAVIR
     Indication: COVID-19 treatment
     Dosage: UNK
     Dates: start: 202210, end: 202210
  2. PAXLOVID [Suspect]
     Active Substance: NIRMATRELVIR\RITONAVIR
     Dosage: UNK
     Dates: start: 20230131, end: 20230205
  3. METHOTREXATE SODIUM [Concomitant]
     Active Substance: METHOTREXATE SODIUM
     Dosage: 22.5 MG, WEEKLY
     Dates: start: 20221227, end: 20230124
  4. CHLORAMPHENICOL [Concomitant]
     Active Substance: CHLORAMPHENICOL
     Dosage: UNK
     Dates: start: 20230129, end: 20230202

REACTIONS (4)
  - Heart rate decreased [Not Recovered/Not Resolved]
  - Supraventricular extrasystoles [Not Recovered/Not Resolved]
  - Palpitations [Not Recovered/Not Resolved]
  - Heart rate irregular [Not Recovered/Not Resolved]

NARRATIVE: CASE EVENT DATE: 20221001
